FAERS Safety Report 7573283-7 (Version None)
Quarter: 2011Q2

REPORT INFORMATION
  Report Type: 
  Country: None (occurrence: None)
  Receive Date: 20110627
  Receipt Date: 20110614
  Transmission Date: 20111010
  Serious: Yes (Hospitalization)
  Sender: FDA-Public Use
  Company Number: PHHY2011NL52309

PATIENT
  Sex: Male

DRUGS (3)
  1. ZOMETA [Suspect]
     Indication: PROSTATE CANCER METASTATIC
     Dosage: 4 MG, EVERY 28 DAYS
     Route: 042
     Dates: start: 20101130
  2. ZOMETA [Suspect]
     Dosage: 4 MG, EVERY 28 DAYS
     Route: 042
     Dates: start: 20110614
  3. ZOMETA [Suspect]
     Dosage: 4 MG, EVERY 28 DAYS
     Route: 042
     Dates: start: 20110517

REACTIONS (3)
  - SPINAL CORD HERNIATION [None]
  - SPINAL DISORDER [None]
  - BACK PAIN [None]
